FAERS Safety Report 4344373-7 (Version None)
Quarter: 2004Q2

REPORT INFORMATION
  Report Type: 
  Country: None (occurrence: None)
  Receive Date: 20040420
  Receipt Date: 20040409
  Transmission Date: 20050107
  Serious: Yes (Death)
  Sender: FDA-Public Use
  Company Number: 2004199583JP

PATIENT
  Age: 57 Year
  Sex: Female

DRUGS (3)
  1. CAMPTOSAR [Suspect]
     Indication: OVARIAN CANCER
     Dosage: 180 MG, CYCLIC, IV DRIP
     Route: 041
     Dates: start: 20040128, end: 20040128
  2. MITOMYCIN [Concomitant]
  3. HANGE-SHASHIN-TO [Concomitant]

REACTIONS (7)
  - BLOOD PRESSURE DECREASED [None]
  - BONE MARROW DEPRESSION [None]
  - CONSTIPATION [None]
  - DIARRHOEA [None]
  - DISSEMINATED INTRAVASCULAR COAGULATION [None]
  - FREQUENT BOWEL MOVEMENTS [None]
  - ILEUS PARALYTIC [None]
